FAERS Safety Report 4547737-1 (Version None)
Quarter: 2005Q1

REPORT INFORMATION
  Report Type: 
  Country: None (occurrence: None)
  Receive Date: 20050107
  Receipt Date: 20041103
  Transmission Date: 20050727
  Serious: Yes (Other)
  Sender: FDA-Public Use
  Company Number: US-MERCK-0411USA00548

PATIENT
  Age: 67 Year
  Sex: Female

DRUGS (5)
  1. VIOXX [Suspect]
     Route: 048
     Dates: start: 20000101, end: 20040901
  2. PAXIL [Concomitant]
     Indication: DEPRESSION
     Route: 048
  3. NORVASC [Concomitant]
     Indication: HYPERTENSION
     Route: 048
     Dates: start: 20001101
  4. ATACAND [Concomitant]
     Indication: HYPERTENSION
     Route: 048
     Dates: start: 20000901
  5. ASPIRIN [Concomitant]
     Route: 048
     Dates: start: 20000901

REACTIONS (2)
  - CEREBROVASCULAR ACCIDENT [None]
  - TRANSIENT ISCHAEMIC ATTACK [None]
